FAERS Safety Report 8093793-6 (Version None)
Quarter: 2012Q1

REPORT INFORMATION
  Report Type: 
  Country: None (occurrence: None)
  Receive Date: 20120129
  Receipt Date: 20111003
  Transmission Date: 20120608
  Serious: No
  Sender: FDA-Public Use
  Company Number: US-ABBOTT-11P-163-0860000-00

PATIENT
  Sex: Female

DRUGS (2)
  1. UNSPECIFIED ASTHMA MEDICATION [Concomitant]
     Indication: ASTHMA
     Dosage: NEBULIZER AS NEEDED
     Route: 055
  2. HUMIRA [Suspect]
     Indication: PSORIATIC ARTHROPATHY
     Route: 058
     Dates: start: 20110501

REACTIONS (3)
  - DYSPNOEA [None]
  - CHRONIC OBSTRUCTIVE PULMONARY DISEASE [None]
  - OXYGEN SATURATION DECREASED [None]
